FAERS Safety Report 19364449 (Version 1)
Quarter: 2021Q2

REPORT INFORMATION
  Report Type: Spontaneous
  Country: US (occurrence: US)
  Receive Date: 20210602
  Receipt Date: 20210602
  Transmission Date: 20210717
  Serious: Yes (Hospitalization)
  Sender: FDA-Public Use
  Company Number: None

PATIENT
  Age: 73 Year
  Sex: Male

DRUGS (11)
  1. FIBERCON TAB 625MG [Concomitant]
     Dates: start: 20210329
  2. REPATHA [Suspect]
     Active Substance: EVOLOCUMAB
     Dosage: ?          OTHER FREQUENCY:EVERY 2 WEEKS;?
     Route: 058
     Dates: start: 20190719
  3. FISH OIL CAP 1000MG [Concomitant]
     Dates: start: 20210329
  4. LANSOPRAZOLE CAP 30MG DR [Concomitant]
     Dates: start: 20210329
  5. VITAMIN C TAB 500MG [Concomitant]
     Dates: start: 20210329
  6. FOLIC ACID TAB 100MCG [Concomitant]
     Dates: start: 20210329
  7. IRON TAB 65MG [Concomitant]
     Dates: start: 20210329
  8. MIRALAX POW 3350NF [Concomitant]
     Dates: start: 20210329
  9. MULTIVITAMIN TAB DAILY [Concomitant]
     Dates: start: 20210329
  10. ASPIRIN LOW TAB 81MG EC [Concomitant]
     Dates: start: 20210329
  11. VITAMIN B12 TAB 1000MCG [Concomitant]
     Dates: start: 20210329

REACTIONS (1)
  - Cholecystectomy [None]

NARRATIVE: CASE EVENT DATE: 20210526
